FAERS Safety Report 7582663-5 (Version None)
Quarter: 2011Q2

REPORT INFORMATION
  Report Type: 
  Country: None (occurrence: None)
  Receive Date: 20110630
  Receipt Date: 20110628
  Transmission Date: 20111010
  Serious: No
  Sender: FDA-Public Use
  Company Number: US-PFIZER INC-2011144453

PATIENT
  Sex: Female
  Weight: 72.562 kg

DRUGS (5)
  1. ADVIL PM [Suspect]
     Dosage: 2 CAPLETS, 1X/DAY
     Route: 048
     Dates: start: 20110610, end: 20110628
  2. HYDROCORTISONE [Concomitant]
     Dosage: UNK, 2X/DAY
  3. ADVIL LIQUI-GELS [Concomitant]
     Indication: HEADACHE
     Dosage: UNK, AS NEEDED
  4. SIMVASTATIN [Concomitant]
     Indication: HYPERCHOLESTEROLAEMIA
     Dosage: UNK
  5. SYNTHROID [Concomitant]
     Dosage: UNK

REACTIONS (1)
  - DRUG INEFFECTIVE [None]
